FAERS Safety Report 8584345-X (Version None)
Quarter: 2012Q3

REPORT INFORMATION
  Report Type: 
  Country: None (occurrence: None)
  Receive Date: 20120810
  Receipt Date: 20120802
  Transmission Date: 20120928
  Serious: No
  Sender: FDA-Public Use
  Company Number: US-BIOGENIDEC-2012BI029313

PATIENT
  Sex: Female

DRUGS (1)
  1. TYSABRI [Suspect]
     Indication: MULTIPLE SCLEROSIS
     Route: 042
     Dates: start: 20111026

REACTIONS (5)
  - FATIGUE [None]
  - FRUSTRATION [None]
  - MUSCULAR WEAKNESS [None]
  - URINARY INCONTINENCE [None]
  - MUSCLE SPASMS [None]
